FAERS Safety Report 5843977-X (Version None)
Quarter: 2008Q3

REPORT INFORMATION
  Report Type: 
  Country: None (occurrence: None)
  Receive Date: 20080813
  Receipt Date: 20080804
  Transmission Date: 20090109
  Serious: Yes (Other)
  Sender: FDA-Public Use
  Company Number: GB-ROCHE-579342

PATIENT
  Sex: Male

DRUGS (1)
  1. ISOTRETINOIN [Suspect]
     Indication: DRUG USE FOR UNKNOWN INDICATION
     Route: 065
     Dates: start: 19940101

REACTIONS (8)
  - ALOPECIA [None]
  - COMA [None]
  - DEPRESSION [None]
  - EPISTAXIS [None]
  - MOOD SWINGS [None]
  - PARAESTHESIA [None]
  - SCAR [None]
  - SKIN IRRITATION [None]
